FAERS Safety Report 5142055-5 (Version None)
Quarter: 2006Q4

REPORT INFORMATION
  Report Type: 
  Country: None (occurrence: None)
  Receive Date: 20061102
  Receipt Date: 20061006
  Transmission Date: 20070319
  Serious: Yes (Life-Threatening)
  Sender: FDA-Public Use
  Company Number: SE-AVENTIS-200620396GDDC

PATIENT
  Age: 28 Year
  Sex: Male

DRUGS (4)
  1. MINIRIN [Suspect]
     Indication: DIABETES INSIPIDUS
     Route: 060
     Dates: start: 20060901, end: 20060926
  2. LEVAXIN [Concomitant]
     Route: 048
  3. HYDROCORTISONE [Concomitant]
     Route: 048
  4. ATMOS [Concomitant]

REACTIONS (4)
  - BLOOD OSMOLARITY INCREASED [None]
  - DISORIENTATION [None]
  - DRUG INEFFECTIVE [None]
  - HYPERNATRAEMIA [None]
